FAERS Safety Report 8287777-2 (Version None)
Quarter: 2012Q2

REPORT INFORMATION
  Report Type: 
  Country: None (occurrence: None)
  Receive Date: 20120416
  Receipt Date: 20120410
  Transmission Date: 20120825
  Serious: Yes (Hospitalization)
  Sender: FDA-Public Use
  Company Number: US-MERCK-1204USA01729

PATIENT
  Age: 60 Year
  Sex: Male

DRUGS (3)
  1. VYTORIN [Suspect]
     Route: 048
     Dates: start: 20120101
  2. ACCOLATE [Concomitant]
     Route: 065
  3. VYTORIN [Suspect]
     Indication: BLOOD CHOLESTEROL
     Route: 048
     Dates: end: 20120101

REACTIONS (3)
  - OVERDOSE [None]
  - RESPIRATORY DISORDER [None]
  - HEPATIC ENZYME INCREASED [None]
